FAERS Safety Report 21400512 (Version 2)
Quarter: 2024Q3

REPORT INFORMATION
  Report Type: Spontaneous
  Country: DE (occurrence: DE)
  Receive Date: 20221003
  Receipt Date: 20240718
  Transmission Date: 20241017
  Serious: Yes (Hospitalization)
  Sender: AUROBINDO
  Company Number: DE-ADRED-08413-01

PATIENT
  Age: 35 Year
  Sex: Male
  Weight: 110 kg

DRUGS (4)
  1. RAMIPRIL [Suspect]
     Active Substance: RAMIPRIL
     Indication: Product used for unknown indication
     Dosage: 2.5 MILLIGRAM, ONCE A DAY
     Route: 048
  2. COMIRNATY (TOZINAMERAN) [Suspect]
     Active Substance: TOZINAMERAN
     Indication: COVID-19 immunisation
     Dosage: 2.DOSIS (2ND DOSE)
     Route: 030
  3. ALBUTEROL [Concomitant]
     Active Substance: ALBUTEROL
     Indication: Product used for unknown indication
     Dosage: 0.1 MILLIGRAM (BEDARF, DOSIERAEROSOL) (AS NEEDED, METERED DOSE INHALER)
  4. SYMBICORT [Concomitant]
     Active Substance: BUDESONIDE\FORMOTEROL FUMARATE DIHYDRATE
     Indication: Product used for unknown indication
     Dosage: UNK, TWO TIMES A DAY (1-0-1-0, PULVERINHALATOR)

REACTIONS (3)
  - Dyspnoea exertional [Unknown]
  - Palpitations [Unknown]
  - Dyspnoea [Unknown]
